FAERS Safety Report 10203570 (Version 2)
Quarter: 2014Q2

REPORT INFORMATION
  Report Type: Spontaneous
  Country: US (occurrence: US)
  Receive Date: 20140529
  Receipt Date: 20140529
  Transmission Date: 20141212
  Serious: No
  Sender: FDA-Public Use
  Company Number: US-MYLANLABS-2013S1014904

PATIENT
  Age: 70 Year
  Sex: Male

DRUGS (4)
  1. ZOLPIDEM TARTRATE TABLETS [Suspect]
     Indication: INSOMNIA
     Route: 048
     Dates: start: 20130622, end: 20130626
  2. PAXIL /00500401/ [Concomitant]
     Indication: DEPRESSION
  3. BLOOD PRESSURE MEDICATION [Concomitant]
  4. DRUGS USED IN DIABETES [Concomitant]

REACTIONS (3)
  - Drug ineffective [Recovered/Resolved]
  - Hallucination [Recovered/Resolved]
  - Insomnia [Recovered/Resolved]
